FAERS Safety Report 7901486-8 (Version None)
Quarter: 2011Q4

REPORT INFORMATION
  Report Type: 
  Country: None (occurrence: None)
  Receive Date: 20111108
  Receipt Date: 20111108
  Transmission Date: 20120403
  Serious: Yes (Death)
  Sender: FDA-Public Use
  Company Number: DE-PFIZER INC-2008006554

PATIENT
  Age: 78 Year
  Sex: Male

DRUGS (1)
  1. SOMATROPIN [Suspect]
     Indication: HYPOPITUITARISM
     Dosage: 1 MG, 1X/DAY
     Dates: start: 19980917, end: 20070821

REACTIONS (1)
  - DEATH [None]
